FAERS Safety Report 5420526-1 (Version None)
Quarter: 2007Q3

REPORT INFORMATION
  Report Type: 
  Country: None (occurrence: None)
  Receive Date: 20070821
  Receipt Date: 20061026
  Transmission Date: 20080115
  Serious: No
  Sender: FDA-Public Use
  Company Number: US-KINGPHARMUSA00001-K200601354

PATIENT

DRUGS (3)
  1. CYTOMEL [Suspect]
     Indication: DEPRESSION
     Dosage: 5 MCG, UP TO 7 TIMES PER DAY
     Route: 048
     Dates: start: 20030101, end: 20061026
  2. SYNTHROID [Concomitant]
     Indication: HYPOTHYROIDISM
     Dosage: UNK, QD
     Route: 048
     Dates: start: 19920101
  3. ESTRADIOL [Concomitant]
     Indication: OESTROGEN THERAPY
     Dosage: UNK, BID
     Route: 048

REACTIONS (3)
  - DYSPEPSIA [None]
  - MUSCULAR WEAKNESS [None]
  - PALPITATIONS [None]
